FAERS Safety Report 5322647-0 (Version None)
Quarter: 2007Q2

REPORT INFORMATION
  Report Type: 
  Country: None (occurrence: None)
  Receive Date: 20070511
  Receipt Date: 20070502
  Transmission Date: 20071010
  Serious: Yes (Hospitalization)
  Sender: FDA-Public Use
  Company Number: BE-ABBOTT-05P-013-0318680-00

PATIENT
  Sex: Male

DRUGS (4)
  1. HUMIRA [Suspect]
     Indication: RHEUMATOID ARTHRITIS
     Route: 058
     Dates: start: 20040518, end: 20051206
  2. LEDERTROXATE [Suspect]
     Indication: RHEUMATOID ARTHRITIS
     Route: 030
     Dates: start: 20000101, end: 20030101
  3. ETANERCEPT [Suspect]
     Indication: RHEUMATOID ARTHRITIS
     Dates: start: 20030201
  4. ETANERCEPT [Suspect]

REACTIONS (4)
  - INVESTIGATION ABNORMAL [None]
  - MEDIASTINAL MASS [None]
  - POSITRON EMISSION TOMOGRAM ABNORMAL [None]
  - THYMUS DISORDER [None]
